FAERS Safety Report 5130766-7 (Version None)
Quarter: 2006Q3

REPORT INFORMATION
  Report Type: 
  Country: None (occurrence: None)
  Receive Date: 20060829
  Receipt Date: 20060601
  Transmission Date: 20061208
  Serious: No
  Sender: FDA-Public Use
  Company Number: PHEH2006US07203

PATIENT
  Age: 59 Year
  Sex: Female

DRUGS (4)
  1. EXJADE [Suspect]
     Indication: BLOOD IRON INCREASED
     Dosage: SEE IMAGE
     Dates: start: 20060503, end: 20060525
  2. EXJADE [Suspect]
     Indication: BLOOD IRON INCREASED
     Dosage: SEE IMAGE
     Dates: start: 20060526
  3. VERAPAMIL [Concomitant]
  4. FOSAMAX [Concomitant]

REACTIONS (5)
  - INCORRECT DOSE ADMINISTERED [None]
  - RASH ERYTHEMATOUS [None]
  - RASH GENERALISED [None]
  - RASH PAPULAR [None]
  - RASH PRURITIC [None]
